FAERS Safety Report 17169837 (Version 3)
Quarter: 2020Q1

REPORT INFORMATION
  Report Type: Spontaneous
  Country: US (occurrence: US)
  Receive Date: 20191218
  Receipt Date: 20200227
  Transmission Date: 20200409
  Serious: No
  Sender: FDA-Public Use
  Company Number: US-PFIZER INC-2019542608

PATIENT
  Age: 34 Year
  Sex: Male

DRUGS (2)
  1. LIDOCAINE HCL [Suspect]
     Active Substance: LIDOCAINE HYDROCHLORIDE
     Indication: HYPOAESTHESIA
     Dosage: UNK (500MG/50ML; BOTTLES ARE 50ML)
  2. LIDOCAINE HCL [Suspect]
     Active Substance: LIDOCAINE HYDROCHLORIDE
     Indication: ANAESTHESIA
     Dosage: 9 ML, UNK (3 ML FOR ANESTHESIA WITH DIGITAL BLOCK) (3 INJECTION GIVEN)
     Dates: start: 20191209, end: 20191209

REACTIONS (1)
  - Drug ineffective [Recovered/Resolved]

NARRATIVE: CASE EVENT DATE: 20191209
